FAERS Safety Report 9933683 (Version 2)
Quarter: 2014Q1

REPORT INFORMATION
  Report Type: Report from Study
  Country: US (occurrence: US)
  Receive Date: 20140228
  Receipt Date: 20140228
  Transmission Date: 20141002
  Serious: No
  Sender: FDA-Public Use
  Company Number: US-MYLANLABS-2013S1010638

PATIENT
  Age: 13 Year
  Sex: Female
  Weight: 59 kg

DRUGS (2)
  1. CLARAVIS [Suspect]
     Indication: ACNE
     Dates: start: 201210
  2. AMNESTEEM CAPSULES [Suspect]
     Indication: ACNE
     Dates: end: 201305

REACTIONS (3)
  - Mood swings [Not Recovered/Not Resolved]
  - Agitation [Not Recovered/Not Resolved]
  - Anger [Not Recovered/Not Resolved]
